FAERS Safety Report 25422232 (Version 2)
Quarter: 2025Q2

REPORT INFORMATION
  Report Type: Spontaneous
  Country: US (occurrence: US)
  Receive Date: 20250611
  Receipt Date: 20250630
  Transmission Date: 20250717
  Serious: Yes (Hospitalization, Other)
  Sender: ASTELLAS
  Company Number: US-ASTELLAS-2025-AER-011398

PATIENT
  Age: 81 Year
  Sex: Female

DRUGS (14)
  1. MYRBETRIQ [Suspect]
     Active Substance: MIRABEGRON
     Indication: Hypertonic bladder
     Dosage: EXTENDED RELEASE TABLETS
     Route: 048
     Dates: start: 202502, end: 202502
  2. METOPROLOL [Suspect]
     Active Substance: METOPROLOL
     Indication: Atrial fibrillation
     Route: 048
     Dates: start: 202502, end: 202502
  3. ATORVASTATIN [Concomitant]
     Active Substance: ATORVASTATIN
     Indication: Blood cholesterol increased
     Route: 048
  4. ATORVASTATIN [Concomitant]
     Active Substance: ATORVASTATIN
     Route: 048
  5. DILTIAZEM [Concomitant]
     Active Substance: DILTIAZEM
     Indication: Cardiac disorder
     Route: 048
  6. DILTIAZEM [Concomitant]
     Active Substance: DILTIAZEM
     Route: 048
  7. DILTIAZEM [Concomitant]
     Active Substance: DILTIAZEM
     Route: 048
  8. JANUMET XR [Concomitant]
     Active Substance: METFORMIN HYDROCHLORIDE\SITAGLIPTIN PHOSPHATE
     Indication: Type 2 diabetes mellitus
     Dosage: 100/1000 ONCE DAILY?ONGOING
     Route: 048
  9. OLMESARTAN [Concomitant]
     Active Substance: OLMESARTAN
     Indication: Cardiac disorder
     Dosage: ONGOING
     Route: 048
  10. OMEPRAZOLE [Concomitant]
     Active Substance: OMEPRAZOLE
     Indication: Gastrooesophageal reflux disease
     Dosage: ONGOING
     Route: 048
  11. XARELTO [Concomitant]
     Active Substance: RIVAROXABAN
     Indication: Atrial fibrillation
     Route: 048
  12. ELIQUIS [Concomitant]
     Active Substance: APIXABAN
     Indication: Atrial fibrillation
     Dosage: ONGOING
     Route: 048
  13. GLIMEPIRIDE [Concomitant]
     Active Substance: GLIMEPIRIDE
     Indication: Type 2 diabetes mellitus
     Route: 048
  14. VITAMIN D [Concomitant]
     Active Substance: VITAMIN D NOS
     Indication: Osteoporosis
     Dosage: ONGOING
     Route: 048

REACTIONS (6)
  - Atrial fibrillation [Recovered/Resolved]
  - Chest pain [Recovered/Resolved]
  - Myocardial injury [Recovered/Resolved]
  - Procedural complication [Recovered/Resolved]
  - Troponin increased [Recovered/Resolved]
  - Heart rate decreased [Recovered/Resolved]

NARRATIVE: CASE EVENT DATE: 20250201
